APPROVED DRUG PRODUCT: SANCUSO
Active Ingredient: GRANISETRON
Strength: 3.1MG/24HR
Dosage Form/Route: FILM, EXTENDED RELEASE;TRANSDERMAL
Application: N022198 | Product #001
Applicant: CUMBERLAND PHARMACEUTICALS INC
Approved: Sep 12, 2008 | RLD: Yes | RS: Yes | Type: RX